FAERS Safety Report 24120200 (Version 1)
Quarter: 2024Q3

REPORT INFORMATION
  Report Type: Spontaneous
  Country: US (occurrence: US)
  Receive Date: 20240722
  Receipt Date: 20240722
  Transmission Date: 20241017
  Serious: Yes (Congenital Anomaly, Other)
  Sender: CB FLEET
  Company Number: US-PRESTIGE-202407-US-002185

PATIENT
  Sex: Male

DRUGS (2)
  1. DRAMAMINE ORIGINAL FORMULA [Suspect]
     Active Substance: DIMENHYDRINATE
     Indication: Foetal exposure during pregnancy
     Dosage: MOTHER TOOK DURING PREGNANCY AS NEEDED
     Route: 048
  2. DRAMAMINE ORIGINAL FORMULA [Suspect]
     Active Substance: DIMENHYDRINATE
     Route: 048

REACTIONS (2)
  - Gastrointestinal inflammation [Not Recovered/Not Resolved]
  - Foetal exposure during pregnancy [Unknown]
